FAERS Safety Report 6284843-8 (Version None)
Quarter: 2009Q3

REPORT INFORMATION
  Report Type: 
  Country: None (occurrence: None)
  Receive Date: 20090727
  Receipt Date: 20090715
  Transmission Date: 20100115
  Serious: Yes (Congenital Anomaly)
  Sender: FDA-Public Use
  Company Number: A0695884A

PATIENT
  Sex: Male
  Weight: 3.5 kg

DRUGS (7)
  1. PAXIL [Suspect]
     Indication: DEPRESSION
     Dosage: 20MG PER DAY
     Dates: start: 20030501, end: 20031001
  2. VITAMIN TAB [Concomitant]
  3. UNSPECIFIED MEDICATION [Concomitant]
  4. MACROBID [Concomitant]
     Indication: URINARY TRACT INFECTION
  5. ALBUTEROL [Concomitant]
     Indication: ASTHMA
  6. PROMETHAZINE [Concomitant]
  7. BRETHINE [Concomitant]
     Dates: start: 20030601

REACTIONS (4)
  - ATRIAL SEPTAL DEFECT [None]
  - CARDIAC MURMUR [None]
  - DRUG EXPOSURE DURING PREGNANCY [None]
  - VENTRICULAR SEPTAL DEFECT [None]
